FAERS Safety Report 10369250 (Version 1)
Quarter: 2014Q1

REPORT INFORMATION
  Report Type: Spontaneous
  Country: US (occurrence: None)
  Receive Date: 20140306
  Receipt Date: 20140306
  Transmission Date: 20141002
  Serious: Yes (Hospitalization)
  Sender: FDA-Public Use
  Company Number: 163-21880-13031251

PATIENT
  Sex: Male

DRUGS (10)
  1. REVLIMID (LENALIDOMIDE) (CAPSULES) [Suspect]
     Indication: PLASMA CELL MYELOMA
     Dosage: 10 MG, 21 IN 21 D, PO
     Route: 048
     Dates: start: 20130115
  2. ENDOCET (OXYCOCET) (TABLET) (PARACETAMOL, OXYCODONE HYDROCHLORIDE) [Concomitant]
  3. DEXAMETHASONE (DEXAMETHASONE) [Concomitant]
  4. CIPRO [Concomitant]
  5. POTASSIUM (POTASSIUM) [Concomitant]
  6. OMEPRAZOLE (OMEPRAZOLE) [Concomitant]
  7. FLEXERIL (CYCLOBENZAPRINE HYDROCHLORIDE) [Concomitant]
  8. ATENLOL/CHORTHALIDONE (TENORETC) [Concomitant]
  9. HYDROXYZINE ZOLPIDEM [Concomitant]
  10. LANSOPRAOLE DOXAZOSIN [Concomitant]

REACTIONS (1)
  - Thrombosis [None]
